FAERS Safety Report 25871043 (Version 1)
Quarter: 2025Q4

REPORT INFORMATION
  Report Type: Spontaneous
  Country: EU (occurrence: EU)
  Receive Date: 20251001
  Receipt Date: 20251001
  Transmission Date: 20260118
  Serious: Yes (Other)
  Sender: ALKEM
  Company Number: EU-ALKEM LABORATORIES LIMITED-IT-ALKEM-2025-10551

PATIENT
  Age: 48 Year
  Sex: Male

DRUGS (4)
  1. RANOLAZINE [Suspect]
     Active Substance: RANOLAZINE
     Indication: Microvascular coronary artery disease
     Dosage: 375 MILLIGRAM, BID
     Route: 065
  2. ATORVASTATIN [Concomitant]
     Active Substance: ATORVASTATIN
     Indication: Hypercholesterolaemia
     Dosage: UNK (HIGH DOSE)
     Route: 065
  3. DAPAGLIFLOZIN [Concomitant]
     Active Substance: DAPAGLIFLOZIN
     Indication: Type 2 diabetes mellitus
     Dosage: UNK
     Route: 065
  4. SEMAGLUTIDE [Concomitant]
     Active Substance: SEMAGLUTIDE
     Indication: Type 2 diabetes mellitus
     Dosage: UNK
     Route: 065

REACTIONS (1)
  - Brugada syndrome [Recovered/Resolved]
